FAERS Safety Report 10084773 (Version 2)
Quarter: 2014Q2

REPORT INFORMATION
  Report Type: Spontaneous
  Country: US (occurrence: ES)
  Receive Date: 20140417
  Receipt Date: 20140424
  Transmission Date: 20141212
  Serious: Yes (Other)
  Sender: FDA-Public Use
  Company Number: ES-FRI-1000066587

PATIENT
  Age: 64 Year
  Sex: Female
  Weight: 80 kg

DRUGS (8)
  1. ROFLUMILAST [Suspect]
     Indication: CHRONIC OBSTRUCTIVE PULMONARY DISEASE
     Dosage: 500 MCG
     Route: 048
     Dates: end: 201307
  2. ROFLUMILAST [Suspect]
     Indication: CHRONIC OBSTRUCTIVE PULMONARY DISEASE
     Dosage: 250 MCG
     Route: 048
     Dates: start: 20140215
  3. PREDNISONE [Concomitant]
  4. CITALOPRAM [Concomitant]
     Dates: end: 20140408
  5. SYMBICORT [Concomitant]
  6. EKLIRA [Concomitant]
  7. ATROVENT [Concomitant]
  8. VENTOLIN [Concomitant]

REACTIONS (3)
  - Suicidal ideation [Unknown]
  - Colitis [Not Recovered/Not Resolved]
  - Off label use [Not Recovered/Not Resolved]
